FAERS Safety Report 23172785 (Version 2)
Quarter: 2024Q2

REPORT INFORMATION
  Report Type: Spontaneous
  Country: NL (occurrence: NL)
  Receive Date: 20231110
  Receipt Date: 20240508
  Transmission Date: 20240715
  Serious: Yes (Other)
  Sender: FDA-Public Use
  Company Number: None

PATIENT
  Age: 86 Year
  Sex: Male

DRUGS (9)
  1. AMIODARONE [Suspect]
     Active Substance: AMIODARONE
     Indication: Ventricular tachycardia
     Dosage: 400 MILLIGRAM, QD (200 MG, BID)
     Route: 065
  2. AMIODARONE [Suspect]
     Active Substance: AMIODARONE
     Dosage: 200 MILLIGRAM, QD
     Route: 065
  3. AMIODARONE [Suspect]
     Active Substance: AMIODARONE
     Dosage: 600 MILLIGRAM, QD (200 MG, TID)
     Route: 065
  4. AMIODARONE [Suspect]
     Active Substance: AMIODARONE
     Dosage: 200 MILLIGRAM, QW (RECEIVED INITIAL LOADING DOSE 3 TIMES A DAY)
     Route: 065
  5. METOPROLOL [Suspect]
     Active Substance: METOPROLOL
     Indication: Ventricular tachycardia
     Dosage: UNK
     Route: 065
  6. QUINAPRIL [Concomitant]
     Active Substance: QUINAPRIL
     Indication: Proteinuria
     Dosage: UNK
     Route: 065
  7. EPLERENONE [Concomitant]
     Active Substance: EPLERENONE
     Indication: Proteinuria
     Dosage: UNK
     Route: 065
  8. PERINDOPRIL [Concomitant]
     Active Substance: PERINDOPRIL
     Indication: Product used for unknown indication
     Dosage: UNK
     Route: 065
  9. BUMETANIDE [Concomitant]
     Active Substance: BUMETANIDE
     Indication: Product used for unknown indication
     Dosage: UNK
     Route: 065

REACTIONS (7)
  - Phospholipidosis [Unknown]
  - Drug ineffective [Unknown]
  - Renal phospholipidosis [Recovering/Resolving]
  - Renal impairment [Recovered/Resolved]
  - Renal tubular acidosis [Unknown]
  - Metabolic acidosis [Unknown]
  - Blood parathyroid hormone increased [Unknown]
